FAERS Safety Report 25480180 (Version 1)
Quarter: 2025Q2

REPORT INFORMATION
  Report Type: Report from Study
  Country: US (occurrence: US)
  Receive Date: 20250625
  Receipt Date: 20250625
  Transmission Date: 20250717
  Serious: Yes (Death, Other)
  Sender: TAKEDA
  Company Number: US-TAKEDA-2025TUS030226

PATIENT
  Sex: Male

DRUGS (14)
  1. FRUQUINTINIB [Suspect]
     Active Substance: FRUQUINTINIB
     Indication: Rectal cancer
  2. FRUQUINTINIB [Suspect]
     Active Substance: FRUQUINTINIB
     Indication: Colon cancer
  3. ACYCLOVIR [Concomitant]
     Active Substance: ACYCLOVIR
  4. DICYCLOMINE HYDROCHLORIDE [Concomitant]
     Active Substance: DICYCLOMINE HYDROCHLORIDE
  5. FENTANYL [Concomitant]
     Active Substance: FENTANYL
  6. LIDOCAINE AND PRILOCAINE [Concomitant]
     Active Substance: LIDOCAINE\PRILOCAINE
  7. LORAZEPAM [Concomitant]
     Active Substance: LORAZEPAM
  8. OLANZAPINE [Concomitant]
     Active Substance: OLANZAPINE
  9. OXYCODONE [Concomitant]
     Active Substance: OXYCODONE
  10. POTASSIUM CHLORIDE [Concomitant]
     Active Substance: POTASSIUM CHLORIDE
  11. PREDNISONE [Concomitant]
     Active Substance: PREDNISONE
  12. PROCHLORPERAZINE MALEATE [Concomitant]
     Active Substance: PROCHLORPERAZINE MALEATE
  13. SANCUSO [Concomitant]
     Active Substance: GRANISETRON
  14. XARELTO [Concomitant]
     Active Substance: RIVAROXABAN

REACTIONS (3)
  - Death [Fatal]
  - Fatigue [Unknown]
  - Dysphonia [Unknown]
